FAERS Safety Report 4691828-1 (Version None)
Quarter: 2005Q2

REPORT INFORMATION
  Report Type: 
  Country: None (occurrence: None)
  Receive Date: 20050615
  Receipt Date: 20050615
  Transmission Date: 20051028
  Serious: No
  Sender: FDA-Public Use
  Company Number: None

PATIENT
  Sex: Female

DRUGS (2)
  1. PPD 5TU/0.1 ML [Suspect]
     Dosage: 0.1 ML YEARLY
  2. PPD 5TU/0.1 ML [Suspect]

REACTIONS (1)
  - INJECTION SITE ERYTHEMA [None]
